FAERS Safety Report 16610438 (Version 1)
Quarter: 2019Q3

REPORT INFORMATION
  Report Type: Spontaneous
  Country: US (occurrence: US)
  Receive Date: 20190722
  Receipt Date: 20190722
  Transmission Date: 20191004
  Serious: No
  Sender: FDA-Public Use
  Company Number: US-FRESENIUS MEDICAL CARE RENAL THERAPIES GROUP-FMC-1907-000865

PATIENT
  Sex: Female

DRUGS (8)
  1. BICARBONATE [Concomitant]
     Active Substance: SODIUM BICARBONATE
  2. ZOFRAN [Concomitant]
     Active Substance: ONDANSETRON HYDROCHLORIDE
  3. 0.9% SODIUM CHLORIDE INJECTION [Suspect]
     Active Substance: SODIUM CHLORIDE
     Indication: END STAGE RENAL DISEASE
  4. LIDOCAINE. [Concomitant]
     Active Substance: LIDOCAINE
  5. VENOFER [Concomitant]
     Active Substance: IRON SUCROSE
  6. MIRCERA [Concomitant]
     Active Substance: METHOXY POLYETHYLENE GLYCOL-EPOETIN BETA
  7. CALCITRIOL. [Concomitant]
     Active Substance: CALCITRIOL
  8. TYLENOL [Concomitant]
     Active Substance: ACETAMINOPHEN

REACTIONS (1)
  - Haemolysis [Unknown]
